FAERS Safety Report 19442436 (Version 1)
Quarter: 2021Q2

REPORT INFORMATION
  Report Type: Spontaneous
  Country: US (occurrence: US)
  Receive Date: 20210619
  Receipt Date: 20210619
  Transmission Date: 20210717
  Serious: Yes (Life-Threatening)
  Sender: FDA-Public Use
  Company Number: None

PATIENT
  Age: 77 Year
  Sex: Female
  Weight: 84.6 kg

DRUGS (5)
  1. WARFARIN [Concomitant]
     Active Substance: WARFARIN
  2. VARITHENA [Suspect]
     Active Substance: POLIDOCANOL
     Indication: PERIPHERAL SWELLING
     Dosage: ?          OTHER FREQUENCY:ONE TIME;?
     Route: 042
     Dates: start: 20210525, end: 20210608
  3. CARVEDILOL. [Concomitant]
     Active Substance: CARVEDILOL
  4. LEVOTHYROXIN [Concomitant]
     Active Substance: LEVOTHYROXINE
  5. HYDROCHLORTHIAZIDE [Concomitant]
     Active Substance: HYDROCHLOROTHIAZIDE

REACTIONS (3)
  - Skin odour abnormal [None]
  - Skin exfoliation [None]
  - Hyperhidrosis [None]

NARRATIVE: CASE EVENT DATE: 20210527
